FAERS Safety Report 25856765 (Version 1)
Quarter: 2025Q3

REPORT INFORMATION
  Report Type: Spontaneous
  Country: US (occurrence: US)
  Receive Date: 20250929
  Receipt Date: 20250929
  Transmission Date: 20251021
  Serious: No
  Sender: ROCHE
  Company Number: US-ROCHE-10000395545

PATIENT
  Sex: Female

DRUGS (9)
  1. ACTEMRA ACTPEN [Suspect]
     Active Substance: TOCILIZUMAB
     Indication: Essential hypertension
     Route: 058
     Dates: start: 20250923
  2. BACLOFEN [Concomitant]
     Active Substance: BACLOFEN
  3. CELECOXIB [Concomitant]
     Active Substance: CELECOXIB
  4. FOLIC ACID [Concomitant]
     Active Substance: FOLIC ACID
  5. METOPROLOL [Concomitant]
     Active Substance: METOPROLOL
  6. MONTELUKAST [Concomitant]
     Active Substance: MONTELUKAST
  7. PANTOPRAZOLE [Concomitant]
     Active Substance: PANTOPRAZOLE
  8. DIETARY SUPPLEMENT [Concomitant]
     Active Substance: DIETARY SUPPLEMENT
  9. SIMVASTATIN [Concomitant]
     Active Substance: SIMVASTATIN

REACTIONS (4)
  - Muscular weakness [Not Recovered/Not Resolved]
  - Product dose omission in error [Unknown]
  - Off label use [Unknown]
  - Pain [Not Recovered/Not Resolved]
